FAERS Safety Report 22202816 (Version 1)
Quarter: 2023Q2

REPORT INFORMATION
  Report Type: Spontaneous
  Country: US (occurrence: None)
  Receive Date: 20230412
  Receipt Date: 20230412
  Transmission Date: 20230722
  Serious: Yes (Life-Threatening, Hospitalization, Disabling, Other)
  Sender: FDA-Public Use
  Company Number: None

PATIENT
  Age: 79 Year
  Sex: Male
  Weight: 100 kg

DRUGS (18)
  1. ABIRATERONE [Suspect]
     Active Substance: ABIRATERONE
     Indication: Prostate cancer
     Dosage: FREQUENCY : DAILY;?
     Route: 048
     Dates: start: 20230213, end: 20230328
  2. EDOXABAN [Concomitant]
     Active Substance: EDOXABAN
  3. EMPAGLIFLOZIN [Concomitant]
     Active Substance: EMPAGLIFLOZIN
  4. GABAPENTIN [Concomitant]
     Active Substance: GABAPENTIN
  5. GUAIFENESIN [Concomitant]
     Active Substance: GUAIFENESIN
  6. KETOROLAC [Concomitant]
     Active Substance: KETOROLAC TROMETHAMINE
  7. LIDOCAINE [Concomitant]
     Active Substance: LIDOCAINE
  8. METOPROLOL SUCCINATE [Concomitant]
     Active Substance: METOPROLOL SUCCINATE
  9. NTG sL [Concomitant]
  10. pantroprazole [Concomitant]
  11. POLYETHYLENE GLYCOL [Concomitant]
     Active Substance: POLYETHYLENE GLYCOL
  12. PREDNISONE [Concomitant]
     Active Substance: PREDNISONE
  13. ROSUVASTATIN [Concomitant]
     Active Substance: ROSUVASTATIN
     Dates: start: 20200422, end: 20230328
  14. SEMAGLUTIDE [Concomitant]
     Active Substance: SEMAGLUTIDE
  15. TAMSULOSIN [Concomitant]
     Active Substance: TAMSULOSIN
  16. LEVOTHYROXINE [Concomitant]
     Active Substance: LEVOTHYROXINE
  17. LISINOPRIL [Concomitant]
     Active Substance: LISINOPRIL
  18. RTC drug (pentoxifylline or placebo) [Concomitant]

REACTIONS (2)
  - Drug interaction [None]
  - Laboratory test abnormal [None]

NARRATIVE: CASE EVENT DATE: 20230328
